FAERS Safety Report 7340670-1 (Version None)
Quarter: 2011Q1

REPORT INFORMATION
  Report Type: 
  Country: None (occurrence: None)
  Receive Date: 20110309
  Receipt Date: 20110302
  Transmission Date: 20110831
  Serious: Yes (Life-Threatening, Hospitalization)
  Sender: FDA-Public Use
  Company Number: US-ROCHE-760433

PATIENT
  Sex: Female
  Weight: 90.4 kg

DRUGS (13)
  1. TEMOZOLOMIDE [Concomitant]
  2. METHYLPHENIDATE [Concomitant]
     Route: 048
  3. ROPINIROLE [Concomitant]
     Route: 048
  4. ROPINIROLE [Concomitant]
     Dosage: FREQUENCY: QHS
     Route: 048
  5. PROTONIX [Concomitant]
     Route: 048
  6. FLUCONAZOLE [Concomitant]
     Route: 048
  7. SERTRALINE [Concomitant]
     Route: 048
  8. ADVAIR DISKUS 100/50 [Concomitant]
     Dosage: DOSE: 250/50
  9. BEVACIZUMAB [Suspect]
     Indication: GLIOBLASTOMA MULTIFORME
     Dosage: FREQUENCY: 14 DAY CYCLE
     Route: 042
     Dates: start: 20101209, end: 20110203
  10. ZOFRAN [Concomitant]
  11. VALIUM [Concomitant]
     Route: 048
  12. DEXAMETHASONE [Concomitant]
     Route: 048
  13. BACTRIM [Concomitant]
     Route: 048

REACTIONS (10)
  - DIZZINESS [None]
  - DEEP VEIN THROMBOSIS [None]
  - DEHYDRATION [None]
  - COUGH [None]
  - PULMONARY EMBOLISM [None]
  - ASTHENIA [None]
  - NAUSEA [None]
  - DYSPNOEA EXERTIONAL [None]
  - PALPITATIONS [None]
  - CHILLS [None]
